FAERS Safety Report 9559163 (Version 2)
Quarter: 2013Q3

REPORT INFORMATION
  Report Type: Report from Study
  Country: DE (occurrence: DE)
  Receive Date: 20130927
  Receipt Date: 20130927
  Transmission Date: 20140515
  Serious: Yes (Hospitalization)
  Sender: FDA-Public Use
  Company Number: DE-BRISTOL-MYERS SQUIBB COMPANY-17281593

PATIENT
  Age: 72 Year
  Sex: Male

DRUGS (9)
  1. CARBOPLATIN [Suspect]
     Indication: NON-SMALL CELL LUNG CANCER
     Route: 042
     Dates: start: 20130103
  2. PACLITAXEL [Suspect]
     Indication: NON-SMALL CELL LUNG CANCER
     Route: 042
     Dates: start: 20130103
  3. ALLOPURINOL [Concomitant]
  4. ENALAPRIL [Concomitant]
  5. HYDROCHLOROTHIAZIDE [Concomitant]
  6. METAMIZOL [Concomitant]
  7. METOCLOPRAMIDE [Concomitant]
  8. TIOTROPIUM BROMIDE [Concomitant]
  9. ZOPICLONE [Concomitant]

REACTIONS (1)
  - Pneumothorax [Recovered/Resolved]
